FAERS Safety Report 8009018-3 (Version None)
Quarter: 2011Q4

REPORT INFORMATION
  Report Type: 
  Country: None (occurrence: None)
  Receive Date: 20111227
  Receipt Date: 20111221
  Transmission Date: 20120403
  Serious: No
  Sender: FDA-Public Use
  Company Number: US-PFIZER INC-2011311833

PATIENT
  Sex: Female

DRUGS (6)
  1. INDAPAMIDE [Concomitant]
     Dosage: UNK
  2. LIPITOR [Suspect]
     Dosage: UNK
  3. BETAXOLOL [Concomitant]
     Dosage: UNK
  4. DIOVAN [Concomitant]
     Dosage: UNK
  5. LIPITOR [Suspect]
     Indication: BLOOD CHOLESTEROL INCREASED
     Dosage: 10 MG, DAILY
  6. NORVASC [Concomitant]
     Dosage: UNK

REACTIONS (1)
  - DYSPHAGIA [None]
